FAERS Safety Report 7970917-X (Version None)
Quarter: 2011Q4

REPORT INFORMATION
  Report Type: 
  Country: None (occurrence: None)
  Receive Date: 20111212
  Receipt Date: 20111209
  Transmission Date: 20120403
  Serious: Yes (Death, Other)
  Sender: FDA-Public Use
  Company Number: PHEH2011US011248

PATIENT
  Sex: Female

DRUGS (1)
  1. RECLAST [Suspect]
     Dosage: 5 MG, UNK
     Route: 042
     Dates: start: 20100101

REACTIONS (2)
  - CHOLELITHIASIS [None]
  - PULMONARY EMBOLISM [None]
